FAERS Safety Report 15112149 (Version 2)
Quarter: 2018Q3

REPORT INFORMATION
  Report Type: Spontaneous
  Country: JP (occurrence: JP)
  Receive Date: 20180705
  Receipt Date: 20180815
  Transmission Date: 20181010
  Serious: Yes (Other)
  Sender: FDA-Public Use
  Company Number: JP-CELGENEUS-JPN-20180610083

PATIENT
  Age: 71 Year
  Sex: Male

DRUGS (4)
  1. REVLIMID [Suspect]
     Active Substance: LENALIDOMIDE
     Route: 048
     Dates: start: 2018
  2. REVLIMID [Suspect]
     Active Substance: LENALIDOMIDE
     Indication: PLASMA CELL MYELOMA
     Dosage: 10 MILLIGRAM
     Route: 048
     Dates: start: 20180613, end: 20180625
  3. LENADEX [Suspect]
     Active Substance: DEXAMETHASONE ACETATE
     Indication: PLASMA CELL MYELOMA
     Dosage: 40 MILLIGRAM
     Route: 048
     Dates: start: 20180613, end: 20180625
  4. LENADEX [Suspect]
     Active Substance: DEXAMETHASONE ACETATE
     Route: 048
     Dates: start: 2018

REACTIONS (1)
  - Liver disorder [Recovered/Resolved]

NARRATIVE: CASE EVENT DATE: 20180625
